FAERS Safety Report 20759847 (Version 1)
Quarter: 2022Q2

REPORT INFORMATION
  Report Type: Spontaneous
  Country: US (occurrence: US)
  Receive Date: 20220427
  Receipt Date: 20220427
  Transmission Date: 20220720
  Serious: Yes (Other)
  Sender: FDA-Public Use
  Company Number: US-Blueprint Medicines Corporation-45

PATIENT
  Sex: Male

DRUGS (1)
  1. AYVAKIT [Suspect]
     Active Substance: AVAPRITINIB
     Indication: Gastrointestinal stromal tumour
     Route: 048
     Dates: start: 20210925

REACTIONS (7)
  - Neoplasm [Unknown]
  - Fatigue [Unknown]
  - Abdominal pain upper [Unknown]
  - Decreased appetite [Unknown]
  - Taste disorder [Unknown]
  - Rash papular [Unknown]
  - Product dose omission issue [Unknown]
